FAERS Safety Report 9540337 (Version 4)
Quarter: 2014Q1

REPORT INFORMATION
  Report Type: Report from Study
  Country: GB (occurrence: GB)
  Receive Date: 20130920
  Receipt Date: 20140224
  Transmission Date: 20141002
  Serious: Yes (Hospitalization)
  Sender: FDA-Public Use
  Company Number: GB-BRISTOL-MYERS SQUIBB COMPANY-19193259

PATIENT
  Age: 65 Year
  Sex: Female

DRUGS (6)
  1. YERVOY [Suspect]
     Indication: METASTATIC MALIGNANT MELANOMA
     Dosage: DOSE:200MG?INJ
     Route: 042
     Dates: start: 20130510, end: 20130719
  2. LOSARTAN [Concomitant]
  3. BENDROFLUMETHIAZIDE [Concomitant]
  4. PARACETAMOL [Concomitant]
  5. LOPERAMIDE [Concomitant]
     Dates: start: 20130812
  6. LOSARTAN [Concomitant]

REACTIONS (2)
  - Diarrhoea [Not Recovered/Not Resolved]
  - Pyrexia [Recovered/Resolved]
